FAERS Safety Report 13842394 (Version 1)
Quarter: 2017Q3

REPORT INFORMATION
  Report Type: Spontaneous
  Country: NL (occurrence: NL)
  Receive Date: 20170808
  Receipt Date: 20170808
  Transmission Date: 20171127
  Serious: Yes (Other)
  Sender: FDA-Public Use
  Company Number: NL-AUROBINDO-AUR-APL-2011-05887

PATIENT
  Age: 69 Year
  Sex: Female

DRUGS (2)
  1. GABAPENTINE AUROBINDO CAPSULES, HARD 100MG [Suspect]
     Active Substance: GABAPENTIN
     Indication: POLYNEUROPATHY
     Dosage: 300 MG,DAILY,
     Route: 065
  2. GABAPENTINE AUROBINDO CAPSULES, HARD 100MG [Suspect]
     Active Substance: GABAPENTIN
     Dosage: 3600 MG,DAILY,
     Route: 065

REACTIONS (3)
  - Gait disturbance [Recovered/Resolved]
  - Drug ineffective [Recovered/Resolved]
  - Fall [Recovered/Resolved]
